FAERS Safety Report 15838473 (Version 2)
Quarter: 2019Q1

REPORT INFORMATION
  Report Type: Spontaneous
  Country: US (occurrence: US)
  Receive Date: 20190117
  Receipt Date: 20190213
  Transmission Date: 20190417
  Serious: Yes (Other)
  Sender: FDA-Public Use
  Company Number: US-ASTRAZENECA-2019SE06565

PATIENT
  Age: 17 Month
  Sex: Female
  Weight: 14 kg

DRUGS (9)
  1. SYNAGIS [Suspect]
     Active Substance: PALIVIZUMAB
     Indication: BRONCHIAL DISORDER
     Route: 030
     Dates: start: 20181101
  2. SYNAGIS [Suspect]
     Active Substance: PALIVIZUMAB
     Indication: BRONCHIAL DISORDER
     Route: 030
     Dates: end: 20181227
  3. SYNAGIS [Suspect]
     Active Substance: PALIVIZUMAB
     Indication: ANTIVIRAL PROPHYLAXIS
     Route: 030
     Dates: end: 20181227
  4. DVISOL [Concomitant]
     Dosage: 400 UNIT/ML 1 ML ONCE DAILY
  5. SYNAGIS [Suspect]
     Active Substance: PALIVIZUMAB
     Indication: ANTIVIRAL PROPHYLAXIS
     Route: 030
     Dates: start: 20181101
  6. TOPAMAX [Concomitant]
     Active Substance: TOPIRAMATE
  7. PROVENTIL HFA [Concomitant]
     Active Substance: ALBUTEROL SULFATE
     Dosage: 90 MCG/ACTUATION INHALER
  8. SABRIL [Concomitant]
     Active Substance: VIGABATRIN
     Dosage: 1000MG (20 ML) IN THE MORNING AND 1250 MG (25ML) AT NIGHT
  9. KLONOPIN [Concomitant]
     Active Substance: CLONAZEPAM
     Indication: MUSCLE SPASMS
     Dosage: 1 TABKLET PRN

REACTIONS (4)
  - Face injury [Unknown]
  - Fall [Unknown]
  - Seizure [Not Recovered/Not Resolved]
  - Epilepsy [Not Recovered/Not Resolved]

NARRATIVE: CASE EVENT DATE: 20181116
